FAERS Safety Report 16526012 (Version 1)
Quarter: 2019Q3

REPORT INFORMATION
  Report Type: Spontaneous
  Country: US (occurrence: US)
  Receive Date: 20190703
  Receipt Date: 20190703
  Transmission Date: 20191004
  Serious: No
  Sender: FDA-Public Use
  Company Number: US-LUPIN PHARMACEUTICALS INC.-2018-04610

PATIENT
  Sex: Female

DRUGS (2)
  1. SIMVASTATIN TABLETS [Suspect]
     Active Substance: SIMVASTATIN
     Indication: PRODUCT USED FOR UNKNOWN INDICATION
     Dosage: UNK
     Route: 065
  2. SIMVASTATIN TABLETS [Suspect]
     Active Substance: SIMVASTATIN
     Dosage: UNK
     Route: 065

REACTIONS (5)
  - Blood cholesterol increased [Not Recovered/Not Resolved]
  - Stress [Not Recovered/Not Resolved]
  - Pruritus [Not Recovered/Not Resolved]
  - Eczema [Not Recovered/Not Resolved]
  - Nervousness [Not Recovered/Not Resolved]
